FAERS Safety Report 18341137 (Version 2)
Quarter: 2022Q4

REPORT INFORMATION
  Report Type: Spontaneous
  Country: US (occurrence: US)
  Receive Date: 20201003
  Receipt Date: 20221007
  Transmission Date: 20230113
  Serious: No
  Sender: FDA-Public Use
  Company Number: US-BIOGEN-2020BI00872351

PATIENT
  Sex: Female

DRUGS (2)
  1. TYSABRI [Suspect]
     Active Substance: NATALIZUMAB
     Indication: Multiple sclerosis
     Route: 050
     Dates: start: 20151023, end: 20171013
  2. TYSABRI [Suspect]
     Active Substance: NATALIZUMAB
     Dosage: INFUSION
     Route: 050
     Dates: start: 20190529

REACTIONS (2)
  - Product dose omission issue [Unknown]
  - Fall [Recovered/Resolved]
